FAERS Safety Report 13990910 (Version 1)
Quarter: 2017Q3

REPORT INFORMATION
  Report Type: Other
  Country: CA (occurrence: CA)
  Receive Date: 20170920
  Receipt Date: 20170920
  Transmission Date: 20171128
  Serious: Yes (Other)
  Sender: FDA-Public Use
  Company Number: CA-APOTEX-2017AP006487

PATIENT
  Age: 61 Year
  Sex: Male
  Weight: 175 kg

DRUGS (9)
  1. APO-CIPROFLOX [Suspect]
     Active Substance: CIPROFLOXACIN
     Dosage: 500 MG, TID
     Route: 065
  2. TAMSULOSIN [Concomitant]
     Active Substance: TAMSULOSIN
     Indication: PRODUCT USED FOR UNKNOWN INDICATION
     Route: 065
  3. APO-CIPROFLOX [Suspect]
     Active Substance: CIPROFLOXACIN
     Indication: INFECTION
     Dosage: 500 MG, BID
     Route: 048
  4. GABAPENTIN. [Concomitant]
     Active Substance: GABAPENTIN
     Indication: PRODUCT USED FOR UNKNOWN INDICATION
     Route: 065
  5. IRBESARTAN. [Concomitant]
     Active Substance: IRBESARTAN
     Indication: PRODUCT USED FOR UNKNOWN INDICATION
     Route: 065
  6. APO-METRONIDAZOLE [Suspect]
     Active Substance: METRONIDAZOLE
     Indication: INFECTION
     Dosage: 500 MG, TID
     Route: 048
  7. LATANOPROST. [Concomitant]
     Active Substance: LATANOPROST
     Indication: PRODUCT USED FOR UNKNOWN INDICATION
     Route: 065
  8. METFORMIN [Concomitant]
     Active Substance: METFORMIN HYDROCHLORIDE
     Indication: PRODUCT USED FOR UNKNOWN INDICATION
     Route: 065
  9. ALLOPURINOL. [Concomitant]
     Active Substance: ALLOPURINOL
     Indication: PRODUCT USED FOR UNKNOWN INDICATION
     Route: 065

REACTIONS (7)
  - Malaise [Recovered/Resolved]
  - Dermatitis exfoliative [Unknown]
  - Rash pruritic [Recovered/Resolved]
  - Rash morbilliform [Unknown]
  - Headache [Unknown]
  - Blister [Unknown]
  - Pruritus [Unknown]
